FAERS Safety Report 8481152-3 (Version None)
Quarter: 2012Q3

REPORT INFORMATION
  Report Type: 
  Country: None (occurrence: None)
  Receive Date: 20120702
  Receipt Date: 20120621
  Transmission Date: 20120928
  Serious: Yes (Hospitalization)
  Sender: FDA-Public Use
  Company Number: GB-ASTRAZENECA-2012SE41893

PATIENT
  Age: 54 Year
  Sex: Male
  Weight: 72 kg

DRUGS (5)
  1. NICOTINE REPLACEMENT THERAPY [Concomitant]
     Indication: SMOKING CESSATION THERAPY
     Route: 055
     Dates: start: 20111202
  2. OLANZAPINE [Concomitant]
     Indication: SCHIZOPHRENIA
     Route: 048
     Dates: start: 20060101
  3. LISINOPRIL [Suspect]
     Indication: HYPERTENSION
     Route: 048
     Dates: start: 20120503, end: 20120506
  4. LITHIUM CITRATE [Interacting]
     Indication: BIPOLAR DISORDER
     Route: 048
     Dates: start: 20050101, end: 20120511
  5. LACTULOSE [Concomitant]
     Indication: CONSTIPATION
     Route: 048
     Dates: start: 20080101

REACTIONS (3)
  - DRUG INTERACTION [None]
  - ANTIPSYCHOTIC DRUG LEVEL INCREASED [None]
  - RENAL FAILURE ACUTE [None]
